FAERS Safety Report 9742214 (Version 3)
Quarter: 2014Q2

REPORT INFORMATION
  Report Type: Report from Study
  Country: DE (occurrence: DE)
  Receive Date: 20131210
  Receipt Date: 20140407
  Transmission Date: 20141212
  Serious: Yes (Hospitalization)
  Sender: FDA-Public Use
  Company Number: DE-ASTELLAS-2013US012778

PATIENT
  Age: 66 Year
  Sex: Female

DRUGS (13)
  1. ERLOTINIB TABLET [Suspect]
     Indication: PANCREATIC CARCINOMA
     Dosage: UNK
     Route: 065
  2. STRUCTOKABIVEN                     /05981101/ [Suspect]
     Indication: MALNUTRITION
     Dosage: 1200 ML, UID/QD
     Route: 042
     Dates: start: 20131113, end: 20131114
  3. GEMZAR [Concomitant]
     Indication: PRODUCT USED FOR UNKNOWN INDICATION
     Dosage: 1600 MG, WEEKLY
     Route: 042
     Dates: start: 20131104
  4. PLASBUMIN-25 [Concomitant]
     Indication: HYPOPROTEINAEMIA
     Dosage: 100 ML, UNKNOWN/D
     Route: 042
  5. PANGROL                            /00014701/ [Concomitant]
     Indication: PRODUCT USED FOR UNKNOWN INDICATION
     Dosage: 40000 IU, TID
     Route: 048
     Dates: start: 20131015
  6. INSULIN [Concomitant]
     Indication: DIABETES MELLITUS
     Dosage: UNK
     Route: 058
  7. CLEXANE [Concomitant]
     Indication: THROMBOSIS PROPHYLAXIS
     Dosage: 40 MG, UID/QD
     Route: 058
     Dates: start: 20131015
  8. MCP AL [Concomitant]
     Indication: NAUSEA
     Dosage: 20 DROPS, QID
     Route: 048
     Dates: start: 20131015
  9. VOMEX A [Concomitant]
     Indication: NAUSEA
     Dosage: 150 MG, BID
     Route: 054
     Dates: start: 20131013
  10. VOMEX A [Concomitant]
     Dosage: 150 MG, BID
     Route: 054
     Dates: start: 20131015
  11. KREON                              /00014701/ [Concomitant]
     Indication: PANCREATIC INSUFFICIENCY
     Dosage: 40000 IU, TID
     Route: 065
     Dates: start: 20131215
  12. FERROUS GLYCINE SULFATE [Concomitant]
     Indication: ANAEMIA
     Dosage: 1 DF, BID
     Route: 065
     Dates: start: 20131130
  13. PERENTEROL                         /00243701/ [Concomitant]
     Indication: GASTROINTESTINAL DISORDER
     Dosage: 1 DF, TID
     Route: 065
     Dates: start: 20131130

REACTIONS (5)
  - Fall [Unknown]
  - Spinal fracture [Recovering/Resolving]
  - Blood glucose increased [Unknown]
  - Syncope [Recovering/Resolving]
  - Bronchopneumonia [Recovering/Resolving]
